FAERS Safety Report 6751027-6 (Version None)
Quarter: 2010Q2

REPORT INFORMATION
  Report Type: 
  Country: None (occurrence: None)
  Receive Date: 20100602
  Receipt Date: 20100518
  Transmission Date: 20101027
  Serious: Yes (Hospitalization)
  Sender: FDA-Public Use
  Company Number: BE-CELGENEUS-013-21880-10051618

PATIENT
  Sex: Female
  Weight: 64 kg

DRUGS (2)
  1. REVLIMID [Suspect]
     Indication: MANTLE CELL LYMPHOMA
     Route: 048
     Dates: start: 20100527
  2. REVLIMID [Suspect]
     Route: 048
     Dates: start: 20100305, end: 20100320

REACTIONS (3)
  - BONE MARROW FAILURE [None]
  - LUNG DISORDER [None]
  - MUCOSAL INFLAMMATION [None]
